FAERS Safety Report 6958229-4 (Version None)
Quarter: 2010Q3

REPORT INFORMATION
  Report Type: 
  Country: None (occurrence: None)
  Receive Date: 20100827
  Receipt Date: 20100827
  Transmission Date: 20110219
  Serious: No
  Sender: FDA-Public Use
  Company Number: None

PATIENT
  Age: 88 Year
  Sex: Female
  Weight: 65.7716 kg

DRUGS (1)
  1. DETROL LA [Suspect]
     Dosage: 1 PILL ONE A DAY
     Dates: start: 20100728

REACTIONS (3)
  - DIZZINESS [None]
  - DYSPNOEA [None]
  - HEART RATE ABNORMAL [None]
